FAERS Safety Report 6371516-6 (Version None)
Quarter: 2009Q3

REPORT INFORMATION
  Report Type: 
  Country: None (occurrence: None)
  Receive Date: 20090923
  Receipt Date: 20080428
  Transmission Date: 20100115
  Serious: No
  Sender: FDA-Public Use
  Company Number: US-ASTRAZENECA-2007UW17083

PATIENT
  Age: 33 Year
  Sex: Male
  Weight: 149.7 kg

DRUGS (7)
  1. SEROQUEL [Suspect]
     Indication: INSOMNIA
     Dosage: 600-800 MG DAILY
     Route: 048
     Dates: start: 20011130
  2. SEROQUEL [Suspect]
     Indication: SCHIZOPHRENIA, PARANOID TYPE
     Dosage: 600-800 MG DAILY
     Route: 048
     Dates: start: 20011130
  3. SEROQUEL [Suspect]
     Dosage: 300 MG - 800 MG
     Route: 048
     Dates: start: 20011130
  4. SEROQUEL [Suspect]
     Dosage: 300 MG - 800 MG
     Route: 048
     Dates: start: 20011130
  5. RISPERDAL [Concomitant]
     Dosage: 6 TO 8 MG
     Dates: start: 19950601, end: 20020101
  6. ZOLOFT [Concomitant]
     Dates: start: 19960401, end: 20070101
  7. WELLBUTRIN [Concomitant]
     Dosage: 20 MG, 30 MG, 75 MG AND 150 MG
     Dates: start: 19991001

REACTIONS (4)
  - BLOOD CHOLESTEROL INCREASED [None]
  - HEPATIC STEATOSIS [None]
  - HYPERTENSION [None]
  - TYPE 2 DIABETES MELLITUS [None]
